FAERS Safety Report 4874205-X (Version None)
Quarter: 2006Q1

REPORT INFORMATION
  Report Type: 
  Country: None (occurrence: None)
  Receive Date: 20060104
  Receipt Date: 20060104
  Transmission Date: 20060701
  Serious: Yes (Life-Threatening)
  Sender: FDA-Public Use
  Company Number: None

PATIENT
  Age: 53 Year
  Sex: Female
  Weight: 76 kg

DRUGS (1)
  1. DOCETAXEL [Suspect]
     Indication: BREAST CANCER
     Dosage: 170 MG Q 21 DAYS
     Dates: start: 20000711, end: 20000802

REACTIONS (3)
  - DYSPNOEA [None]
  - FLUSHING [None]
  - PRURITUS [None]
